FAERS Safety Report 24991085 (Version 2)
Quarter: 2025Q2

REPORT INFORMATION
  Report Type: Report from Study
  Country: JP (occurrence: JP)
  Receive Date: 20250220
  Receipt Date: 20250618
  Transmission Date: 20250717
  Serious: Yes (Death, Hospitalization)
  Sender: RECORDATI
  Company Number: JP-RECORDATI RARE DISEASE INC.-2025001017

PATIENT
  Sex: Male
  Weight: 11.6 kg

DRUGS (8)
  1. CARBAGLU [Suspect]
     Active Substance: CARGLUMIC ACID
     Indication: Propionic acidaemia
     Dosage: 112 MG, BID (EVERY 12 HOURS)
     Dates: start: 20171013, end: 20171111
  2. CARBAGLU [Suspect]
     Active Substance: CARGLUMIC ACID
     Dosage: 112 MG, QID (EVERY 6 HOURS)
     Dates: start: 20171112, end: 20200511
  3. CARBAGLU [Suspect]
     Active Substance: CARGLUMIC ACID
     Dosage: 400 MG, QID (AFTER MEALS: MORNING, NOON, NIGHT, BEFORE BEDTIME)
     Dates: start: 20200512
  4. BUPHENYL [Concomitant]
     Active Substance: SODIUM PHENYLBUTYRATE
     Indication: Hyperammonaemia
     Dosage: 1500 MG, TID
     Route: 048
     Dates: start: 20171010, end: 20171018
  5. CYANOCOBALAMIN\PYRIDOXINE HYDROCHLORIDE\THIAMINE [Concomitant]
     Active Substance: CYANOCOBALAMIN\PYRIDOXINE HYDROCHLORIDE\THIAMINE
     Indication: Propionic acidaemia
     Dosage: 0.9 GRAM, TID
     Route: 048
     Dates: start: 20171010, end: 20241010
  6. Cinal [Concomitant]
     Indication: Propionic acidaemia
     Dosage: 1.2 GRAM, TID
     Route: 048
     Dates: start: 20171110, end: 20241010
  7. TOCOPHERYL NICOTINATE, D-.ALPHA. [Concomitant]
     Active Substance: TOCOPHERYL NICOTINATE, D-.ALPHA.
     Indication: Disease complication
     Dosage: 30 MG, TID
     Route: 048
     Dates: start: 20241010
  8. Uralyt u [Concomitant]
     Indication: Disease complication
     Route: 048

REACTIONS (2)
  - Gastroenteritis [Fatal]
  - Agitation [Unknown]

NARRATIVE: CASE EVENT DATE: 20240101
